FAERS Safety Report 8462264-7 (Version None)
Quarter: 2012Q2

REPORT INFORMATION
  Report Type: 
  Country: None (occurrence: None)
  Receive Date: 20120618
  Receipt Date: 20120601
  Transmission Date: 20120825
  Serious: Yes (Disabling)
  Sender: FDA-Public Use
  Company Number: THQ2012A04920

PATIENT
  Age: 52 Year
  Sex: Male

DRUGS (4)
  1. ALBUTEROL SULATE [Concomitant]
  2. LANSOPRAZOLE [Suspect]
     Indication: PRODUCT USED FOR UNKNOWN INDICATION
     Dosage: 15 MG
     Route: 048
     Dates: end: 20100626
  3. BECLOMETHASONE DIPROPIONATE [Concomitant]
  4. DESLORATADINE [Concomitant]

REACTIONS (7)
  - PARAESTHESIA [None]
  - FATIGUE [None]
  - HEADACHE [None]
  - RASH [None]
  - LIP DISCOLOURATION [None]
  - MUSCULOSKELETAL PAIN [None]
  - DIARRHOEA [None]
